FAERS Safety Report 11512268 (Version 1)
Quarter: 2015Q3

REPORT INFORMATION
  Report Type: Spontaneous
  Country: US (occurrence: US)
  Receive Date: 20150916
  Receipt Date: 20150916
  Transmission Date: 20151125
  Serious: No
  Sender: FDA-Public Use
  Company Number: US-ASTRAZENECA-2015SE87053

PATIENT
  Sex: Female

DRUGS (5)
  1. LANTUS [Concomitant]
     Active Substance: INSULIN GLARGINE
  2. TETRACYCLINE [Concomitant]
     Active Substance: TETRACYCLINE
  3. MACROLIDE ANTIBIOTICS [Concomitant]
  4. AMLODIPINE [Concomitant]
     Active Substance: AMLODIPINE BESYLATE
  5. BYETTA [Suspect]
     Active Substance: EXENATIDE
     Dosage: BYETTA 250 MCG / 1.2 ML PEN
     Route: 065
     Dates: start: 201411

REACTIONS (2)
  - Blood glucose decreased [Unknown]
  - Device breakage [Unknown]
